FAERS Safety Report 7345245-6 (Version None)
Quarter: 2011Q1

REPORT INFORMATION
  Report Type: 
  Country: None (occurrence: None)
  Receive Date: 20110310
  Receipt Date: 20110228
  Transmission Date: 20110831
  Serious: Yes (Other)
  Sender: FDA-Public Use
  Company Number: US-ELI_LILLY_AND_COMPANY-US201103000161

PATIENT
  Sex: Female

DRUGS (7)
  1. NIASPAN [Concomitant]
     Dosage: UNK, UNKNOWN
     Route: 065
  2. ALPRAZOLAM [Concomitant]
  3. TRAZODONE HCL [Concomitant]
  4. CARVEDILOL [Concomitant]
  5. CYMBALTA [Suspect]
     Dosage: UNK, UNKNOWN
     Route: 065
  6. ZIPRASIDONE HYDROCHLORIDE [Concomitant]
     Dosage: UNK, UNKNOWN
     Route: 065
  7. SIMVASTATIN [Concomitant]

REACTIONS (2)
  - BIPOLAR DISORDER [None]
  - BLOOD CHOLESTEROL INCREASED [None]
